FAERS Safety Report 4358734-3 (Version None)
Quarter: 2004Q2

REPORT INFORMATION
  Report Type: 
  Country: None (occurrence: None)
  Receive Date: 20040514
  Receipt Date: 20040514
  Transmission Date: 20050107
  Serious: No
  Sender: FDA-Public Use
  Company Number: None

PATIENT
  Age: 86 Year
  Sex: Male

DRUGS (1)
  1. TEQUIN [Suspect]
     Indication: LOCALISED INFECTION
     Dosage: 400 MG PO BID
     Route: 048

REACTIONS (1)
  - URTICARIA GENERALISED [None]
